FAERS Safety Report 17426554 (Version 1)
Quarter: 2020Q1

REPORT INFORMATION
  Report Type: Report from Study
  Country: CO (occurrence: CO)
  Receive Date: 20200218
  Receipt Date: 20200218
  Transmission Date: 20200409
  Serious: Yes (Hospitalization, Other)
  Sender: FDA-Public Use
  Company Number: CO-ASTELLAS-2020US005788

PATIENT
  Age: 39 Year
  Sex: Female

DRUGS (2)
  1. TACROLIMUS. [Suspect]
     Active Substance: TACROLIMUS
     Indication: RENAL TRANSPLANT
     Route: 048
  2. MYCOPHENOLATE [Concomitant]
     Active Substance: MYCOPHENOLIC ACID
     Indication: RENAL TRANSPLANT
     Dosage: 360 MG, EVERY 12 HOURS (STARTED 9 YEARS AGO)
     Route: 048

REACTIONS (9)
  - Bronchial disorder [Recovering/Resolving]
  - Headache [Recovering/Resolving]
  - Breast cyst [Unknown]
  - Enterovirus infection [Recovering/Resolving]
  - Proteus infection [Not Recovered/Not Resolved]
  - Rhinovirus infection [Recovering/Resolving]
  - Urinary tract infection [Not Recovered/Not Resolved]
  - Influenza [Recovering/Resolving]
  - Blood creatinine increased [Recovering/Resolving]

NARRATIVE: CASE EVENT DATE: 201911
